FAERS Safety Report 5206976-7 (Version None)
Quarter: 2007Q1

REPORT INFORMATION
  Report Type: 
  Country: None (occurrence: None)
  Receive Date: 20070105
  Receipt Date: 20070105
  Transmission Date: 20070707
  Serious: Yes (Death)
  Sender: FDA-Public Use
  Company Number: None

PATIENT
  Age: 23 Year
  Sex: Male
  Weight: 79.3795 kg

DRUGS (2)
  1. METHADONE HCL [Suspect]
  2. XANAX [Suspect]

REACTIONS (1)
  - ACCIDENTAL DEATH [None]
